FAERS Safety Report 9844549 (Version 1)
Quarter: 2014Q1

REPORT INFORMATION
  Report Type: Spontaneous
  Country: US (occurrence: None)
  Receive Date: 20140123
  Receipt Date: 20140123
  Transmission Date: 20141002
  Serious: Yes (Disabling, Other)
  Sender: FDA-Public Use
  Company Number: None

PATIENT
  Age: 40 Year
  Sex: Female
  Weight: 113.4 kg

DRUGS (2)
  1. RISPERDAL [Suspect]
     Indication: HALLUCINATION, AUDITORY
     Route: 048
     Dates: start: 2001, end: 2009
  2. INVEGA [Suspect]

REACTIONS (2)
  - Anaphylactic shock [None]
  - Drug ineffective [None]
